FAERS Safety Report 4736636-8 (Version None)
Quarter: 2005Q3

REPORT INFORMATION
  Report Type: 
  Country: None (occurrence: None)
  Receive Date: 20050808
  Receipt Date: 20050801
  Transmission Date: 20060218
  Serious: No
  Sender: FDA-Public Use
  Company Number: 2005UW11342

PATIENT
  Age: 43 Year
  Sex: Male
  Weight: 73 kg

DRUGS (5)
  1. SEROQUEL [Suspect]
     Indication: DEPRESSION
     Route: 048
     Dates: start: 20050301
  2. LEXAPRO [Concomitant]
  3. TENORMIN [Concomitant]
  4. MULTI-VITAMINS [Concomitant]
  5. NEXIUM [Concomitant]

REACTIONS (3)
  - FURUNCLE [None]
  - STAPHYLOCOCCAL INFECTION [None]
  - WHITE BLOOD CELL COUNT DECREASED [None]
